FAERS Safety Report 10236477 (Version 3)
Quarter: 2014Q4

REPORT INFORMATION
  Report Type: Spontaneous
  Country: JP (occurrence: JP)
  Receive Date: 20140613
  Receipt Date: 20141026
  Transmission Date: 20150528
  Serious: Yes (Life-Threatening)
  Sender: FDA-Public Use
  Company Number: JP-BRISTOL-MYERS SQUIBB COMPANY-21001094

PATIENT
  Age: 86 Year
  Sex: Male
  Weight: 49 kg

DRUGS (3)
  1. ERBITUX [Suspect]
     Active Substance: CETUXIMAB
     Indication: HEAD AND NECK CANCER
     Dosage: 02MY14-15MY14?16MY14-22MY14 390 MG
     Route: 041
     Dates: start: 20140502, end: 20140522
  2. MINOCYCLINE HCL [Suspect]
     Active Substance: MINOCYCLINE HYDROCHLORIDE
     Indication: PROPHYLAXIS
     Dosage: CAPS
     Route: 048
     Dates: start: 20140502, end: 20140525
  3. ERBITUX [Suspect]
     Active Substance: CETUXIMAB
     Indication: OESOPHAGEAL CARCINOMA
     Dosage: 02MY14-15MY14?16MY14-22MY14 390 MG
     Route: 041
     Dates: start: 20140502, end: 20140522

REACTIONS (1)
  - Pancytopenia [Recovered/Resolved]

NARRATIVE: CASE EVENT DATE: 20140520
